FAERS Safety Report 18749975 (Version 1)
Quarter: 2021Q1

REPORT INFORMATION
  Report Type: Other
  Country: CN (occurrence: CN)
  Receive Date: 20210118
  Receipt Date: 20210118
  Transmission Date: 20210419
  Serious: Yes (Other)
  Sender: FDA-Public Use
  Company Number: CN-ROCHE-2744627

PATIENT

DRUGS (1)
  1. CAPECITABINE. [Suspect]
     Active Substance: CAPECITABINE
     Indication: NASOPHARYNGEAL CANCER
     Route: 048

REACTIONS (17)
  - Leukopenia [Unknown]
  - Rash [Unknown]
  - Fatigue [Unknown]
  - Dermatitis [Unknown]
  - Hypoaesthesia [Unknown]
  - Hepatic function abnormal [Unknown]
  - Vomiting [Unknown]
  - Anaemia [Unknown]
  - Hypoacusis [Unknown]
  - Neutropenia [Unknown]
  - Diarrhoea [Unknown]
  - Thrombocytopenia [Unknown]
  - Palmar-plantar erythrodysaesthesia syndrome [Unknown]
  - Skin fibrosis [Unknown]
  - Abdominal pain [Unknown]
  - Mucosal inflammation [Unknown]
  - Dry mouth [Unknown]
